FAERS Safety Report 6323156-2 (Version None)
Quarter: 2009Q3

REPORT INFORMATION
  Report Type: 
  Country: None (occurrence: None)
  Receive Date: 20090824
  Receipt Date: 20090812
  Transmission Date: 20100115
  Serious: Yes (Other)
  Sender: FDA-Public Use
  Company Number: CA-PFIZER INC-2009255504

PATIENT
  Age: 70 Year

DRUGS (6)
  1. SUNITINIB MALATE [Suspect]
     Indication: ENDOMETRIAL CANCER
     Dosage: 50 MG, QD FOR 4 WEEKS
     Route: 048
     Dates: start: 20090506
  2. AMLODIPINE [Concomitant]
  3. ATENOLOL [Concomitant]
  4. HYDROCHLOROTHIAZIDE [Concomitant]
  5. MICARDIS [Concomitant]
  6. OMEPRAZOLE [Concomitant]

REACTIONS (1)
  - ANXIETY [None]
